FAERS Safety Report 9658460 (Version 1)
Quarter: 2013Q4

REPORT INFORMATION
  Report Type: Spontaneous
  Country: US (occurrence: US)
  Receive Date: 20131030
  Receipt Date: 20131030
  Transmission Date: 20140711
  Serious: No
  Sender: FDA-Public Use
  Company Number: US-PURDUE-USA-2012-0085033

PATIENT
  Age: 54 Year
  Sex: Female

DRUGS (2)
  1. OXYCONTIN (NDA 22-272) [Suspect]
     Indication: PRODUCT USED FOR UNKNOWN INDICATION
     Dosage: 20 MG, QID
  2. OXYCONTIN (NDA 22-272) [Suspect]
     Dosage: 40 MG, UNK

REACTIONS (2)
  - Dizziness [Unknown]
  - Inadequate analgesia [Unknown]
